FAERS Safety Report 19212957 (Version 3)
Quarter: 2021Q3

REPORT INFORMATION
  Report Type: Spontaneous
  Country: US (occurrence: US)
  Receive Date: 20210504
  Receipt Date: 20210810
  Transmission Date: 20211014
  Serious: Yes (Hospitalization)
  Sender: FDA-Public Use
  Company Number: US-ROCHE-2586159

PATIENT
  Sex: Male
  Weight: 65.83 kg

DRUGS (7)
  1. PROTONIX [Concomitant]
     Active Substance: PANTOPRAZOLE SODIUM
     Route: 048
     Dates: start: 20190828
  2. IMODIUM A?D [Concomitant]
     Active Substance: LOPERAMIDE HYDROCHLORIDE
     Route: 048
     Dates: start: 20200504
  3. VOLTAREN [Concomitant]
     Active Substance: DICLOFENAC SODIUM
     Route: 048
     Dates: start: 20210601
  4. AVASTIN [Suspect]
     Active Substance: BEVACIZUMAB
     Indication: HYPERCALCAEMIA
     Dosage: 400 MG/ 16 ML VL; INFUSE 310MG INTRAVENOUSLY, ONGOING; YES, 25/MAR/2020, 02/FEB/2021 .
     Route: 042
     Dates: start: 20200228
  5. AVASTIN [Suspect]
     Active Substance: BEVACIZUMAB
     Route: 042
  6. AVASTIN [Suspect]
     Active Substance: BEVACIZUMAB
     Route: 042
     Dates: start: 20210202
  7. TYLENOL [Concomitant]
     Active Substance: ACETAMINOPHEN
     Route: 048
     Dates: start: 20190828

REACTIONS (6)
  - Abdominal pain upper [Recovered/Resolved]
  - Diarrhoea infectious [Recovered/Resolved]
  - Arthralgia [Unknown]
  - Back pain [Unknown]
  - Off label use [Unknown]
  - Pyrexia [Unknown]
